FAERS Safety Report 23784387 (Version 3)
Quarter: 2025Q2

REPORT INFORMATION
  Report Type: Spontaneous
  Country: US (occurrence: US)
  Receive Date: 20240425
  Receipt Date: 20250410
  Transmission Date: 20250717
  Serious: No
  Sender: KINIKSA PHARMACEUTICALS
  Company Number: US-Kiniksa Pharmaceuticals Ltd.-2023KPU000627

PATIENT
  Age: 67 Year
  Sex: Female

DRUGS (1)
  1. ARCALYST [Suspect]
     Active Substance: RILONACEPT
     Indication: Product used for unknown indication
     Route: 058

REACTIONS (8)
  - Product dose omission issue [Unknown]
  - Product dose omission issue [Recovered/Resolved]
  - Illness [Unknown]
  - Product dose omission issue [Unknown]
  - Streptococcal infection [Unknown]
  - Bronchitis viral [Unknown]
  - Intentional dose omission [Unknown]
  - Respiratory tract infection [Unknown]

NARRATIVE: CASE EVENT DATE: 20230703
